FAERS Safety Report 4299137-X (Version None)
Quarter: 2004Q1

REPORT INFORMATION
  Report Type: 
  Country: None (occurrence: None)
  Receive Date: 20040217
  Receipt Date: 20040202
  Transmission Date: 20041129
  Serious: Yes (Other)
  Sender: FDA-Public Use
  Company Number: HQWYE813404FEB04

PATIENT
  Sex: Female

DRUGS (1)
  1. DIMETAPP [Suspect]
     Dosage: 2 TABLETS, ORAL
     Route: 048
     Dates: start: 19990101, end: 19990101

REACTIONS (3)
  - DYSPNOEA [None]
  - HYPOKINESIA [None]
  - OVERDOSE [None]
